FAERS Safety Report 5005914-X (Version None)
Quarter: 2006Q1

REPORT INFORMATION
  Report Type: 
  Country: None (occurrence: None)
  Receive Date: 20060320
  Receipt Date: 20050208
  Transmission Date: 20060701
  Serious: Yes (Other)
  Sender: FDA-Public Use
  Company Number: 2005-02-0774

PATIENT
  Sex: Female

DRUGS (2)
  1. PEG-INTRON [Suspect]
     Dosage: 96 MCG  QWK   SUBCUTANEOUS
     Route: 058
     Dates: start: 20030701, end: 20040801
  2. RIBAVIRIN [Suspect]
     Dosage: 1000 MG QD ORAL
     Route: 048
     Dates: start: 20030701, end: 20040801

REACTIONS (1)
  - RETINOPATHY [None]
